FAERS Safety Report 13798008 (Version 1)
Quarter: 2017Q3

REPORT INFORMATION
  Report Type: Spontaneous
  Country: US (occurrence: US)
  Receive Date: 20170726
  Receipt Date: 20170726
  Transmission Date: 20171127
  Serious: Yes (Other)
  Sender: FDA-Public Use
  Company Number: None

PATIENT
  Age: 86 Year
  Sex: Female

DRUGS (1)
  1. PROLIA [Suspect]
     Active Substance: DENOSUMAB
     Indication: OSTEOPOROSIS
     Dosage: OTHER FREQUENCY:EVERY 6 MONTHS;?
     Route: 030

REACTIONS (7)
  - Nausea [None]
  - Muscular weakness [None]
  - Insomnia [None]
  - Back pain [None]
  - Pelvic pain [None]
  - Vomiting [None]
  - Urinary tract infection [None]

NARRATIVE: CASE EVENT DATE: 20170618
